FAERS Safety Report 9695762 (Version 1)
Quarter: 2013Q4

REPORT INFORMATION
  Report Type: Spontaneous
  Country: US (occurrence: None)
  Receive Date: 20131118
  Receipt Date: 20131118
  Transmission Date: 20140711
  Serious: Yes (Other)
  Sender: FDA-Public Use
  Company Number: None

PATIENT
  Age: 43 Year
  Sex: Male
  Weight: 140.62 kg

DRUGS (2)
  1. CIPRO [Suspect]
     Indication: CYSTITIS
     Route: 048
     Dates: start: 20130701, end: 20130705
  2. LASIX [Concomitant]

REACTIONS (1)
  - Tinnitus [None]
